FAERS Safety Report 16714005 (Version 2)
Quarter: 2019Q4

REPORT INFORMATION
  Report Type: Report from Study
  Country: RO (occurrence: RO)
  Receive Date: 20190819
  Receipt Date: 20191004
  Transmission Date: 20200122
  Serious: Yes (Hospitalization, Other)
  Sender: FDA-Public Use
  Company Number: RO-GILEAD-2019-0423823

PATIENT
  Age: 77 Year
  Sex: Male

DRUGS (8)
  1. ASPENTER [Concomitant]
     Active Substance: ASPIRIN
     Indication: CARDIAC DISORDER
     Dosage: UNK
  2. IBUTIN [Concomitant]
     Indication: CARDIAC DISORDER
     Dosage: UNK
  3. DIUREX [FUROSEMIDE] [Concomitant]
     Indication: CARDIAC DISORDER
     Dosage: UNK
  4. CONCOR [Concomitant]
     Active Substance: BISOPROLOL FUMARATE
     Indication: CARDIAC DISORDER
     Dosage: UNK
  5. NORMIX [Concomitant]
     Active Substance: RIFAXIMIN
     Indication: CARDIAC DISORDER
     Dosage: UNK
  6. PREDUCTAL [Concomitant]
     Active Substance: TRIMETAZIDINE DIHYDROCHLORIDE
     Indication: CARDIAC DISORDER
     Dosage: UNK
  7. LEDIPASVIR/SOFOSBUVIR [Suspect]
     Active Substance: LEDIPASVIR\SOFOSBUVIR
     Indication: CHRONIC HEPATITIS C
     Dosage: 1 DOSAGE FORM, QD
     Route: 048
     Dates: start: 20190510, end: 20190801
  8. NITROPECTOR [Concomitant]
     Indication: CARDIAC DISORDER
     Dosage: UNK

REACTIONS (5)
  - Haemorrhage intracranial [Not Recovered/Not Resolved]
  - Road traffic accident [Unknown]
  - Traumatic lung injury [Not Recovered/Not Resolved]
  - Rib fracture [Not Recovered/Not Resolved]
  - Internal haemorrhage [Not Recovered/Not Resolved]

NARRATIVE: CASE EVENT DATE: 20190812
